FAERS Safety Report 5732811-4 (Version None)
Quarter: 2008Q2

REPORT INFORMATION
  Report Type: 
  Country: None (occurrence: None)
  Receive Date: 20080507
  Receipt Date: 20080507
  Transmission Date: 20081010
  Serious: Yes (Hospitalization)
  Sender: FDA-Public Use
  Company Number: None

PATIENT
  Sex: Female
  Weight: 68.2 kg

DRUGS (7)
  1. BEVACIZUMAB (RHUMAB VEGF) [Suspect]
     Dosage: 363 MG
     Dates: end: 20080430
  2. ELOXATIN [Suspect]
     Dosage: 118 MG
     Dates: end: 20080430
  3. FLUOROURACIL [Suspect]
     Dosage: 4055 MG
     Dates: end: 20080430
  4. BENTYL [Concomitant]
  5. VICODIN [Concomitant]
  6. COUMADIN [Concomitant]
  7. ZOMETA [Concomitant]

REACTIONS (1)
  - GASTROINTESTINAL HAEMORRHAGE [None]
